FAERS Safety Report 6261990-8 (Version None)
Quarter: 2009Q3

REPORT INFORMATION
  Report Type: 
  Country: None (occurrence: None)
  Receive Date: 20090707
  Receipt Date: 20090707
  Transmission Date: 20100115
  Serious: Yes (Other)
  Sender: FDA-Public Use
  Company Number: None

PATIENT
  Age: 39 Year
  Sex: Female
  Weight: 63.5036 kg

DRUGS (1)
  1. ZYRTEC [Suspect]
     Dosage: 10 MG ONCE A DAY PO
     Route: 048
     Dates: start: 20090401, end: 20090701

REACTIONS (7)
  - DEPRESSED MOOD [None]
  - DRUG WITHDRAWAL SYNDROME [None]
  - DYSURIA [None]
  - INSOMNIA [None]
  - POLLAKIURIA [None]
  - PRURITUS GENERALISED [None]
  - URINARY TRACT INFECTION [None]
